FAERS Safety Report 6033845-5 (Version None)
Quarter: 2009Q1

REPORT INFORMATION
  Report Type: 
  Country: None (occurrence: None)
  Receive Date: 20090109
  Receipt Date: 20090109
  Transmission Date: 20090719
  Serious: No
  Sender: FDA-Public Use
  Company Number: None

PATIENT
  Sex: Female

DRUGS (5)
  1. FOSAMAX [Suspect]
     Indication: OSTEOPOROSIS PROPHYLAXIS
     Dosage: 10 MG/70 MG WEEKLY ORAL
     Route: 048
     Dates: start: 20000101, end: 20050101
  2. BONIVA [Suspect]
     Dosage: 150 MG MONTHLY ORAL
     Route: 048
     Dates: start: 20050101, end: 20080101
  3. ZETIA [Concomitant]
  4. CALCIUM [Concomitant]
  5. ADVIL LIQUI-GELS [Concomitant]

REACTIONS (5)
  - BONE DISORDER [None]
  - JAW DISORDER [None]
  - LIP DISORDER [None]
  - SENSORY LOSS [None]
  - SWELLING [None]
